FAERS Safety Report 26178410 (Version 1)
Quarter: 2025Q4

REPORT INFORMATION
  Report Type: Spontaneous
  Country: US (occurrence: US)
  Receive Date: 20251219
  Receipt Date: 20251219
  Transmission Date: 20260118
  Serious: Yes (Hospitalization, Other)
  Sender: AUROBINDO
  Company Number: US-MLMSERVICE-20251128-PI730617-00232-1

PATIENT
  Age: 74 Year
  Sex: Female

DRUGS (4)
  1. PREDNISONE [Suspect]
     Active Substance: PREDNISONE
     Indication: Immunosuppressant drug therapy
     Dosage: UNK
     Route: 065
  2. MYCOPHENOLIC ACID [Suspect]
     Active Substance: MYCOPHENOLIC ACID
     Indication: Immunosuppressant drug therapy
     Dosage: UNK
     Route: 065
  3. TACROLIMUS [Suspect]
     Active Substance: TACROLIMUS
     Indication: Immunosuppressant drug therapy
     Dosage: UNK
     Route: 065
  4. LINEZOLID [Concomitant]
     Active Substance: LINEZOLID
     Indication: Product used for unknown indication
     Dosage: UNK
     Route: 065

REACTIONS (2)
  - Enterococcal bacteraemia [Recovering/Resolving]
  - Blood creatinine increased [Unknown]
